FAERS Safety Report 5152637-2 (Version None)
Quarter: 2006Q4

REPORT INFORMATION
  Report Type: 
  Country: None (occurrence: None)
  Receive Date: 20061109
  Receipt Date: 20061025
  Transmission Date: 20070319
  Serious: Yes (Death)
  Sender: FDA-Public Use
  Company Number: 237055K06USA

PATIENT
  Age: 61 Year
  Sex: Male

DRUGS (1)
  1. REBIF [Suspect]
     Indication: MULTIPLE SCLEROSIS
     Dates: start: 20030228, end: 20060501

REACTIONS (2)
  - CEREBROVASCULAR ACCIDENT [None]
  - RENAL FAILURE [None]
